FAERS Safety Report 4508004-5 (Version None)
Quarter: 2004Q4

REPORT INFORMATION
  Report Type: 
  Country: None (occurrence: None)
  Receive Date: 20041122
  Receipt Date: 20041122
  Transmission Date: 20050328
  Serious: No
  Sender: FDA-Public Use
  Company Number: None

PATIENT
  Age: 64 Year
  Sex: Male
  Weight: 73.2 kg

DRUGS (2)
  1. IBUPROFEN [Suspect]
     Indication: ARTHRALGIA
     Dosage: 600 MG PO TID
     Route: 048
     Dates: start: 20040729, end: 20040901
  2. IBUPROFEN [Suspect]
     Indication: INFLAMMATION
     Dosage: 600 MG PO TID
     Route: 048
     Dates: start: 20040729, end: 20040901

REACTIONS (1)
  - BLOOD ALKALINE PHOSPHATASE INCREASED [None]
